FAERS Safety Report 25028916 (Version 1)
Quarter: 2025Q1

REPORT INFORMATION
  Report Type: Spontaneous
  Country: US (occurrence: US)
  Receive Date: 20250302
  Receipt Date: 20250302
  Transmission Date: 20250409
  Serious: No
  Sender: BAUSCH AND LOMB
  Company Number: US-BAUSCHBL-2025BNL003080

PATIENT
  Age: 61 Year
  Sex: Female

DRUGS (1)
  1. ERYTHROMYCIN [Suspect]
     Active Substance: ERYTHROMYCIN
     Indication: Product used for unknown indication
     Route: 065

REACTIONS (6)
  - Eye swelling [Unknown]
  - Eye discharge [Unknown]
  - Purulent discharge [Unknown]
  - Eye irritation [Unknown]
  - Product dose omission in error [Unknown]
  - Product delivery mechanism issue [Unknown]
